FAERS Safety Report 7373123-5 (Version None)
Quarter: 2011Q1

REPORT INFORMATION
  Report Type: 
  Country: None (occurrence: None)
  Receive Date: 20110316
  Receipt Date: 20110304
  Transmission Date: 20110831
  Serious: Yes (Disabling)
  Sender: FDA-Public Use
  Company Number: 201103IM001793

PATIENT
  Age: 47 Year
  Sex: Female

DRUGS (1)
  1. ACTIMMUNE [Suspect]
     Dosage: 100 UG, ONE TIME EVERY WEEK, INJECTION
     Dates: start: 20091113, end: 20101101

REACTIONS (1)
  - DIABETES MELLITUS [None]
